FAERS Safety Report 11700122 (Version 1)
Quarter: 2015Q4

REPORT INFORMATION
  Report Type: Spontaneous
  Country: US (occurrence: None)
  Receive Date: 20151104
  Receipt Date: 20151104
  Transmission Date: 20160304
  Serious: Yes (Hospitalization)
  Sender: FDA-Public Use
  Company Number: None

PATIENT
  Age: 70 Year
  Sex: Male
  Weight: 74.39 kg

DRUGS (8)
  1. NAPROXEN TABS EXPRESS SCRIPTS [Suspect]
     Active Substance: NAPROXEN
     Indication: ARTHRALGIA
     Dosage: MOUTH; 180 TABS.
     Dates: start: 200001, end: 201411
  2. CLOPIDOGREL [Concomitant]
     Active Substance: CLOPIDOGREL BISULFATE
  3. ENALAPRIL [Concomitant]
     Active Substance: ENALAPRIL
  4. GLYBURIDE. [Concomitant]
     Active Substance: GLYBURIDE
  5. PRAVASTATIN [Concomitant]
     Active Substance: PRAVASTATIN\PRAVASTATIN SODIUM
  6. VITAMIN D [Concomitant]
     Active Substance: CHOLECALCIFEROL
  7. METPHORMIN [Concomitant]
  8. METOPROLOL [Concomitant]
     Active Substance: METOPROLOL

REACTIONS (2)
  - Gastric ulcer [None]
  - Gastric haemorrhage [None]

NARRATIVE: CASE EVENT DATE: 201411
